FAERS Safety Report 8727156 (Version 2)
Quarter: 2015Q2

REPORT INFORMATION
  Report Type: Report from Study
  Country: US (occurrence: US)
  Receive Date: 20120816
  Receipt Date: 20150407
  Transmission Date: 20150821
  Serious: Yes (Hospitalization, Other)
  Sender: FDA-Public Use
  Company Number: US-ROCHE-1101479

PATIENT
  Sex: Male

DRUGS (7)
  1. NITROGLYCERINE [Concomitant]
     Active Substance: NITROGLYCERIN
     Route: 048
  2. ACETAMINOPHEN. [Concomitant]
     Active Substance: ACETAMINOPHEN
  3. TENORMIN [Concomitant]
     Active Substance: ATENOLOL
     Route: 065
  4. ASPIRIN. [Concomitant]
     Active Substance: ASPIRIN
  5. ATENOLOL. [Concomitant]
     Active Substance: ATENOLOL
     Route: 065
  6. ACTIVASE [Suspect]
     Active Substance: ALTEPLASE
     Indication: ACUTE MYOCARDIAL INFARCTION
     Route: 065
     Dates: start: 19950408
  7. MORPHINE SULPHATE DRIP [Concomitant]
     Indication: PAIN
     Route: 065

REACTIONS (11)
  - Anxiety [Unknown]
  - Hyperhidrosis [Unknown]
  - Headache [Unknown]
  - Electrocardiogram ST segment elevation [Unknown]
  - Bradycardia [Unknown]
  - Chest discomfort [Unknown]
  - Dyspnoea [Unknown]
  - Electrocardiogram T wave amplitude increased [Unknown]
  - Blood creatine phosphokinase increased [Unknown]
  - Vasodilatation [Unknown]
  - Pain [Unknown]
